FAERS Safety Report 5264961-3 (Version None)
Quarter: 2007Q1

REPORT INFORMATION
  Report Type: 
  Country: None (occurrence: None)
  Receive Date: 20061122
  Receipt Date: 20060830
  Transmission Date: 20070707
  Serious: Yes (Hospitalization)
  Sender: FDA-Public Use
  Company Number: US-JNJFOC-20060900239

PATIENT
  Age: 56 Year
  Sex: Female

DRUGS (1)
  1. RISPERDAL CONSTA [Suspect]
     Indication: SCHIZOPHRENIA
     Dosage: 50 MG, 1 IN 2 WEEK, INTRA-MUSCULAR
     Route: 030

REACTIONS (2)
  - PANCREATITIS [None]
  - THROMBOCYTOPENIA [None]
